FAERS Safety Report 10248989 (Version 1)
Quarter: 2014Q2

REPORT INFORMATION
  Report Type: Spontaneous
  Country: US (occurrence: None)
  Receive Date: 20140522
  Receipt Date: 20140522
  Transmission Date: 20141212
  Serious: No
  Sender: FDA-Public Use
  Company Number: 1000064706

PATIENT
  Age: 72 Year
  Sex: Female

DRUGS (5)
  1. TUDORAZA PRESSAIR (ACLIDINIUM BROMIDE) (400 MICROGRAM, POWDER) [Suspect]
     Indication: ASTHMA
     Route: 055
     Dates: start: 201312
  2. ALBUTEROL SULFATE (SALBUTAMOL SULFATE) [Concomitant]
  3. MUCINEX (GUAIFENESIN) [Concomitant]
  4. ADVAIR DISKUS [Concomitant]
  5. ZYRTEC (CETIRIZINE HYDROCHLORIDE) [Concomitant]

REACTIONS (2)
  - Rhinorrhoea [None]
  - Off label use [None]
